FAERS Safety Report 8835049 (Version 1)
Quarter: 2012Q4

REPORT INFORMATION
  Report Type: 
  Country: US (occurrence: US)
  Receive Date: 20121011
  Receipt Date: 20121011
  Transmission Date: 20130627
  Serious: Yes (Other)
  Sender: FDA-Public Use
  Company Number: US-ELI_LILLY_AND_COMPANY-US201210001972

PATIENT
  Sex: Male

DRUGS (4)
  1. CIALIS [Suspect]
     Indication: ERECTILE DYSFUNCTION
     Dosage: 5 mg, prn
  2. CIALIS [Suspect]
     Dosage: 10 mg, prn
  3. CIALIS [Suspect]
     Dosage: 20 mg, prn
  4. CIALIS [Suspect]
     Dosage: 5 mg, qd

REACTIONS (4)
  - Blood triglycerides increased [Not Recovered/Not Resolved]
  - Rhinorrhoea [Unknown]
  - Nasal congestion [Unknown]
  - Drug ineffective [Recovered/Resolved]
